FAERS Safety Report 4354553-2 (Version None)
Quarter: 2004Q2

REPORT INFORMATION
  Report Type: 
  Country: None (occurrence: None)
  Receive Date: 20040506
  Receipt Date: 20040506
  Transmission Date: 20050107
  Serious: Yes (Other)
  Sender: FDA-Public Use
  Company Number: None

PATIENT
  Age: 44 Year
  Sex: Male

DRUGS (1)
  1. TUBERCULIN,PPD, DILUTED/APLISOL PARKEDALE PHARMACEUTICALS [Suspect]
     Indication: TUBERCULIN TEST
     Dosage: 0.1 ML SQ
     Route: 058
     Dates: start: 20040505

REACTIONS (2)
  - DYSPNOEA [None]
  - OROPHARYNGEAL SWELLING [None]
